FAERS Safety Report 5754315-5 (Version None)
Quarter: 2008Q2

REPORT INFORMATION
  Report Type: 
  Country: None (occurrence: None)
  Receive Date: 20080530
  Receipt Date: 20080519
  Transmission Date: 20081010
  Serious: Yes (Other)
  Sender: FDA-Public Use
  Company Number: GB-PFIZER INC-2007103651

PATIENT
  Age: 65 Year
  Sex: Female

DRUGS (5)
  1. CHANTIX [Suspect]
     Route: 048
     Dates: start: 20071024, end: 20071126
  2. EFFEXOR [Concomitant]
     Route: 048
  3. PREDNISOLONE [Concomitant]
     Route: 048
  4. OTHER RESPIRATORY SYSTEM PRODUCTS [Concomitant]
  5. ANTIBIOTICS [Concomitant]

REACTIONS (2)
  - ABNORMAL DREAMS [None]
  - DEPRESSION [None]
